FAERS Safety Report 8310013-5 (Version None)
Quarter: 2012Q2

REPORT INFORMATION
  Report Type: 
  Country: None (occurrence: None)
  Receive Date: 20120425
  Receipt Date: 20120418
  Transmission Date: 20120825
  Serious: Yes (Hospitalization)
  Sender: FDA-Public Use
  Company Number: US-BAYER-2011-052184

PATIENT
  Age: 33 Year
  Sex: Female
  Weight: 79 kg

DRUGS (7)
  1. DROSPIRENONE AND ETHINYL ESTRADIOL [Suspect]
     Indication: CONTRACEPTION
     Dosage: UNK
     Dates: start: 20020401, end: 20020601
  2. YAZ [Suspect]
     Dosage: UNK
     Dates: start: 20090301, end: 20090501
  3. AMBIEN [Concomitant]
  4. NORGESTIMATE AND ETHINYL ESTRADIOL [Concomitant]
  5. CALCIUM CARBONATE [Concomitant]
  6. DROSPIRENONE AND ETHINYL ESTRADIOL [Suspect]
     Dosage: UNK
     Dates: start: 20090301, end: 20090501
  7. YAZ [Suspect]
     Indication: CONTRACEPTION
     Dosage: UNK
     Dates: start: 20020401, end: 20020601

REACTIONS (10)
  - PAIN [None]
  - DEPRESSION [None]
  - CHOLELITHIASIS [None]
  - CHOLECYSTECTOMY [None]
  - EMOTIONAL DISORDER [None]
  - CONSTIPATION [None]
  - INJURY [None]
  - ANXIETY [None]
  - DIARRHOEA [None]
  - SCAR [None]
